FAERS Safety Report 15641464 (Version 8)
Quarter: 2019Q3

REPORT INFORMATION
  Report Type: Report from Study
  Country: CA (occurrence: CA)
  Receive Date: 20181120
  Receipt Date: 20190905
  Transmission Date: 20191004
  Serious: Yes (Death, Hospitalization, Other)
  Sender: FDA-Public Use
  Company Number: CA-BRISTOL-MYERS SQUIBB COMPANY-BMS-2018-107516

PATIENT
  Age: 86 Year
  Sex: Male

DRUGS (1)
  1. ABATACEPT [Suspect]
     Active Substance: ABATACEPT
     Indication: RHEUMATOID ARTHRITIS
     Dosage: 750 MILLIGRAM, Q4WK
     Route: 042
     Dates: start: 20180919, end: 20190725

REACTIONS (11)
  - Death [Fatal]
  - Anaemia [Recovering/Resolving]
  - Respiratory tract congestion [Recovered/Resolved]
  - Pneumonia [Unknown]
  - Erythema [Unknown]
  - Cough [Recovered/Resolved]
  - Radiation injury [Unknown]
  - Skin cancer [Recovering/Resolving]
  - Dehydration [Recovered/Resolved]
  - Fall [Unknown]
  - Upper limb fracture [Unknown]

NARRATIVE: CASE EVENT DATE: 20181113
